FAERS Safety Report 11110417 (Version 1)
Quarter: 2015Q2

REPORT INFORMATION
  Report Type: Spontaneous
  Country: US (occurrence: None)
  Receive Date: 20150512
  Receipt Date: 20150512
  Transmission Date: 20150821
  Serious: Yes (Hospitalization)
  Sender: FDA-Public Use
  Company Number: None

PATIENT
  Age: 67 Year
  Sex: Male
  Weight: 69.4 kg

DRUGS (1)
  1. BELATACEPT [Suspect]
     Active Substance: BELATACEPT
     Indication: IMMUNOSUPPRESSION
     Dosage: 250MG, ONCE, IVPB
     Route: 041
     Dates: start: 20140325

REACTIONS (3)
  - Venous occlusion [None]
  - Skin erosion [None]
  - Bleeding varicose vein [None]

NARRATIVE: CASE EVENT DATE: 20140618
